FAERS Safety Report 19364272 (Version 1)
Quarter: 2021Q2

REPORT INFORMATION
  Report Type: Report from Study
  Country: CA (occurrence: CA)
  Receive Date: 20210603
  Receipt Date: 20210603
  Transmission Date: 20210717
  Serious: Yes (Other)
  Sender: FDA-Public Use
  Company Number: CA-JNJFOC-20210539926

PATIENT
  Age: 59 Year
  Sex: Female
  Weight: 80 kg

DRUGS (2)
  1. REMICADE [Suspect]
     Active Substance: INFLIXIMAB
     Dosage: INFUSED ON 01?APR?2021.
     Route: 042
  2. REMICADE [Suspect]
     Active Substance: INFLIXIMAB
     Indication: CROHN^S DISEASE
     Dosage: STRENGTH: 5 (MG/KG)
     Route: 042
     Dates: start: 20201203, end: 20210401

REACTIONS (12)
  - Vision blurred [Unknown]
  - Off label use [Unknown]
  - Alopecia [Unknown]
  - Haemorrhoidal haemorrhage [Unknown]
  - Blepharospasm [Unknown]
  - Diarrhoea [Recovering/Resolving]
  - Cardiac flutter [Unknown]
  - Madarosis [Unknown]
  - Productive cough [Unknown]
  - Rash [Not Recovered/Not Resolved]
  - Feeling abnormal [Unknown]
  - Product use issue [Unknown]

NARRATIVE: CASE EVENT DATE: 202012
